FAERS Safety Report 8871031 (Version 2)
Quarter: 2012Q4

REPORT INFORMATION
  Report Type: Spontaneous
  Country: US (occurrence: None)
  Receive Date: 20121026
  Receipt Date: 20121026
  Transmission Date: 20130627
  Serious: Yes (Disabling, Other)
  Sender: FDA-Public Use
  Company Number: None

PATIENT
  Sex: Female
  Weight: 116.12 kg

DRUGS (2)
  1. PAXIL [Suspect]
  2. PAROXETINE [Suspect]

REACTIONS (3)
  - Drug ineffective [None]
  - Drug withdrawal syndrome [None]
  - Product substitution issue [None]
